FAERS Safety Report 12198249 (Version 1)
Quarter: 2016Q1

REPORT INFORMATION
  Report Type: Spontaneous
  Country: US (occurrence: US)
  Receive Date: 20160322
  Receipt Date: 20160322
  Transmission Date: 20160526
  Serious: No
  Sender: FDA-Public Use
  Company Number: US-JNJFOC-20160212552

PATIENT
  Sex: Male
  Weight: 43.09 kg

DRUGS (4)
  1. RISPERIDONE. [Suspect]
     Active Substance: RISPERIDONE
     Indication: DEPRESSION
     Route: 048
     Dates: start: 201106, end: 201506
  2. RISPERIDONE. [Suspect]
     Active Substance: RISPERIDONE
     Indication: PSYCHIATRIC SYMPTOM
     Route: 048
     Dates: start: 201106, end: 201506
  3. RISPERIDONE. [Suspect]
     Active Substance: RISPERIDONE
     Indication: PSYCHIATRIC SYMPTOM
     Dosage: 1/4
     Route: 048
     Dates: start: 201506, end: 201601
  4. RISPERIDONE. [Suspect]
     Active Substance: RISPERIDONE
     Indication: DEPRESSION
     Dosage: 1/4
     Route: 048
     Dates: start: 201506, end: 201601

REACTIONS (4)
  - Breast enlargement [Not Recovered/Not Resolved]
  - Product use issue [Unknown]
  - Depressed mood [Not Recovered/Not Resolved]
  - Off label use [Unknown]

NARRATIVE: CASE EVENT DATE: 2015
